FAERS Safety Report 4910918-9 (Version None)
Quarter: 2006Q1

REPORT INFORMATION
  Report Type: 
  Country: None (occurrence: None)
  Receive Date: 20060214
  Receipt Date: 20060203
  Transmission Date: 20060701
  Serious: Yes (Other)
  Sender: FDA-Public Use
  Company Number: DK-ROCHE-435044

PATIENT
  Age: 18 Year
  Sex: Female
  Weight: 58 kg

DRUGS (2)
  1. ROACCUTANE [Suspect]
     Indication: ACNE
     Route: 048
     Dates: start: 20060110, end: 20060126
  2. ORABET [Concomitant]
     Route: 048
     Dates: start: 20051015, end: 20051115

REACTIONS (2)
  - NO ADVERSE EFFECT [None]
  - PREGNANCY [None]
